FAERS Safety Report 10243450 (Version 2)
Quarter: 2014Q2

REPORT INFORMATION
  Report Type: Spontaneous
  Country: BR (occurrence: BR)
  Receive Date: 20140618
  Receipt Date: 20140618
  Transmission Date: 20141212
  Serious: Yes (Disabling)
  Sender: FDA-Public Use
  Company Number: BR-ASTRAZENECA-2014SE31935

PATIENT
  Age: 531 Month
  Sex: Female

DRUGS (9)
  1. OMEPRAZOLE [Suspect]
     Route: 048
  2. CIMZIA [Suspect]
     Indication: RHEUMATOID ARTHRITIS
     Dosage: 200 MG/ML, 02 SYRINGES / MONTHY
     Route: 058
     Dates: start: 201311, end: 20140225
  3. METHOTREXATE [Concomitant]
  4. FOLIC ACID [Concomitant]
  5. PREDNISONE [Concomitant]
  6. CALCIUM [Concomitant]
  7. VITAMIN D [Concomitant]
  8. PARACETAMOL [Concomitant]
     Indication: PAIN
     Dosage: PRN
  9. IBUPROFEN [Concomitant]
     Indication: PAIN
     Dosage: PRN

REACTIONS (3)
  - Pain [Not Recovered/Not Resolved]
  - Movement disorder [Unknown]
  - Intentional product misuse [Not Recovered/Not Resolved]
